FAERS Safety Report 12355667 (Version 1)
Quarter: 2016Q2

REPORT INFORMATION
  Report Type: Spontaneous
  Country: US (occurrence: US)
  Receive Date: 20160511
  Receipt Date: 20160511
  Transmission Date: 20160815
  Serious: Yes (Hospitalization, Other)
  Sender: FDA-Public Use
  Company Number: US-FRI-1000084475

PATIENT
  Age: 58 Year
  Sex: Male
  Weight: 126 kg

DRUGS (1)
  1. LINZESS [Suspect]
     Active Substance: LINACLOTIDE
     Route: 048

REACTIONS (7)
  - Pruritus [Unknown]
  - Rash generalised [Unknown]
  - Blood glucose increased [Unknown]
  - Heart rate increased [Unknown]
  - Swelling [Unknown]
  - Urticaria [Unknown]
  - Rash [Unknown]
